FAERS Safety Report 6737534-0 (Version None)
Quarter: 2010Q2

REPORT INFORMATION
  Report Type: 
  Country: None (occurrence: None)
  Receive Date: 20100524
  Receipt Date: 20100524
  Transmission Date: 20101027
  Serious: Yes (Life-Threatening, Other)
  Sender: FDA-Public Use
  Company Number: None

PATIENT
  Age: 6 Year
  Sex: Male
  Weight: 21.7727 kg

DRUGS (6)
  1. CHILDREN'S MOTRIN [Suspect]
     Indication: H1N1 INFLUENZA
     Dosage: 1.5 TSP EVERY 6-8 HOURS PO
     Route: 048
     Dates: start: 20091027, end: 20091027
  2. CHILDREN'S MOTRIN [Suspect]
     Indication: PYREXIA
     Dosage: 1.5 TSP EVERY 6-8 HOURS PO
     Route: 048
     Dates: start: 20091027, end: 20091027
  3. CHILDREN'S MOTRIN [Suspect]
     Indication: VIRAL INFECTION
     Dosage: 1.5 TSP EVERY 6-8 HOURS PO
     Route: 048
     Dates: start: 20091027, end: 20091027
  4. CHILDREN'S MOTRIN [Suspect]
     Indication: H1N1 INFLUENZA
     Dosage: 1.5 TSP EVERY 6-8 HOURS PO
     Route: 048
     Dates: start: 20100301, end: 20100301
  5. CHILDREN'S MOTRIN [Suspect]
     Indication: PYREXIA
     Dosage: 1.5 TSP EVERY 6-8 HOURS PO
     Route: 048
     Dates: start: 20100301, end: 20100301
  6. CHILDREN'S MOTRIN [Suspect]
     Indication: VIRAL INFECTION
     Dosage: 1.5 TSP EVERY 6-8 HOURS PO
     Route: 048
     Dates: start: 20100301, end: 20100301

REACTIONS (2)
  - DRUG HYPERSENSITIVITY [None]
  - PRODUCT QUALITY ISSUE [None]
